FAERS Safety Report 13290707 (Version 2)
Quarter: 2017Q1

REPORT INFORMATION
  Report Type: Spontaneous
  Country: US (occurrence: US)
  Receive Date: 20170303
  Receipt Date: 20170331
  Transmission Date: 20170428
  Serious: No
  Sender: FDA-Public Use
  Company Number: US-PFIZER INC-2017085874

PATIENT
  Age: 10 Year
  Sex: Male
  Weight: 22 kg

DRUGS (11)
  1. PROVENTIL [Concomitant]
     Active Substance: ALBUTEROL
     Dosage: 2.5 MG/3 ML, UNK
  2. MIRALAX [Concomitant]
     Active Substance: POLYETHYLENE GLYCOL 3350
     Dosage: 10 ML, UNK
     Route: 048
  3. GENOTROPIN [Suspect]
     Active Substance: SOMATROPIN
     Indication: HYPOTHYROIDISM
  4. PULMICORT TURBUHALER [Concomitant]
     Active Substance: BUDESONIDE
     Dosage: 0.25 MG, DAILY
  5. NIZORAL [Concomitant]
     Active Substance: KETOCONAZOLE
     Dosage: UNK
     Route: 061
  6. GENOTROPIN [Suspect]
     Active Substance: SOMATROPIN
     Indication: PRECOCIOUS PUBERTY
  7. GENOTROPIN [Suspect]
     Active Substance: SOMATROPIN
     Indication: FAILURE TO THRIVE
  8. VYVANSE [Concomitant]
     Active Substance: LISDEXAMFETAMINE DIMESYLATE
     Dosage: 20 MG, 1X/DAY (EVERY MORNING)
     Route: 048
  9. GENOTROPIN [Suspect]
     Active Substance: SOMATROPIN
     Indication: DELAYED PUBERTY
  10. NIZORAL [Concomitant]
     Active Substance: KETOCONAZOLE
     Dosage: UNK, 2X/WEEK
     Route: 061
  11. GENOTROPIN [Suspect]
     Active Substance: SOMATROPIN
     Indication: BODY HEIGHT BELOW NORMAL
     Dosage: 0.8 MG, DAILY

REACTIONS (1)
  - Anxiety [Unknown]
